FAERS Safety Report 20039815 (Version 2)
Quarter: 2021Q4

REPORT INFORMATION
  Report Type: Spontaneous
  Country: US (occurrence: US)
  Receive Date: 20211106
  Receipt Date: 20211118
  Transmission Date: 20220303
  Serious: No
  Sender: FDA-Public Use
  Company Number: US-009507513-2111USA000766

PATIENT
  Sex: Male

DRUGS (2)
  1. DIFICID [Suspect]
     Active Substance: FIDAXOMICIN
     Dosage: UNK
     Dates: start: 2021
  2. VANCOMYCIN [Suspect]
     Active Substance: VANCOMYCIN
     Dosage: UNK
     Dates: start: 2021

REACTIONS (3)
  - Drug ineffective [Unknown]
  - Diarrhoea [Not Recovered/Not Resolved]
  - Culture stool positive [Not Recovered/Not Resolved]

NARRATIVE: CASE EVENT DATE: 20210101
